FAERS Safety Report 9765994 (Version 1)
Quarter: 2013Q4

REPORT INFORMATION
  Report Type: Spontaneous
  Country: US (occurrence: None)
  Receive Date: 20131213
  Receipt Date: 20131213
  Transmission Date: 20140711
  Serious: Yes (Other)
  Sender: FDA-Public Use
  Company Number: 2013SA028896

PATIENT
  Age: 50 Year
  Sex: Male

DRUGS (1)
  1. GOLD BOND PAIN RELIEVING FOOT CREAM [Suspect]
     Indication: PRODUCT USED FOR UNKNOWN INDICATION
     Route: 061
     Dates: start: 20101031

REACTIONS (4)
  - Thermal burn [None]
  - Pain [None]
  - Activities of daily living impaired [None]
  - Sleep disorder [None]
